FAERS Safety Report 18620900 (Version 4)
Quarter: 2021Q1

REPORT INFORMATION
  Report Type: Spontaneous
  Country: JP (occurrence: JP)
  Receive Date: 20201216
  Receipt Date: 20210122
  Transmission Date: 20210419
  Serious: Yes (Hospitalization, Other)
  Sender: FDA-Public Use
  Company Number: JP-JNJFOC-20201223922

PATIENT
  Age: 65 Year
  Sex: Male
  Weight: 60.75 kg

DRUGS (16)
  1. RESTAMIN [Concomitant]
     Active Substance: DIPHENHYDRAMINE
     Route: 048
  2. XEPLION [Suspect]
     Active Substance: PALIPERIDONE PALMITATE
     Indication: SCHIZOPHRENIA
     Route: 030
     Dates: start: 201501, end: 20200828
  3. XEPLION [Suspect]
     Active Substance: PALIPERIDONE PALMITATE
  4. BIPRESSO [QUETIAPINE FUMARATE] [Suspect]
     Active Substance: QUETIAPINE FUMARATE
     Indication: SCHIZOPHRENIA
     Route: 048
     Dates: start: 20201023, end: 20201119
  5. BELSOMRA [Concomitant]
     Active Substance: SUVOREXANT
     Route: 048
     Dates: end: 2020
  6. BIOFERMIN [BIFIDOBACTERIUM NOS] [Concomitant]
     Dosage: DOSAGE UNKNOWN
     Route: 048
  7. RISPERDAL [Concomitant]
     Active Substance: RISPERIDONE
     Indication: SCHIZOPHRENIA
     Route: 048
     Dates: start: 2020
  8. ROSUVASTATIN. [Suspect]
     Active Substance: ROSUVASTATIN
     Indication: DYSLIPIDAEMIA
     Route: 048
     Dates: start: 20090805, end: 20201119
  9. XEPLION [Suspect]
     Active Substance: PALIPERIDONE PALMITATE
     Indication: SCHIZOPHRENIA
     Route: 030
     Dates: start: 20200925, end: 20201023
  10. BIPRESSO [QUETIAPINE FUMARATE] [Suspect]
     Active Substance: QUETIAPINE FUMARATE
     Route: 048
  11. BIPERIDEN HYDROCHLORIDE [Suspect]
     Active Substance: BIPERIDEN HYDROCHLORIDE
     Indication: PROPHYLAXIS
     Route: 048
     Dates: start: 20160816
  12. LITHIUM CARBONATE. [Suspect]
     Active Substance: LITHIUM CARBONATE
     Route: 048
     Dates: end: 2020
  13. TRAZODONE HYDROCHLORIDE. [Concomitant]
     Active Substance: TRAZODONE HYDROCHLORIDE
     Route: 048
  14. POLAPREZINC [Concomitant]
     Active Substance: POLAPREZINC
     Route: 048
  15. FLUNITRAZEPAM [Concomitant]
     Active Substance: FLUNITRAZEPAM
     Route: 065
  16. RIVOTRIL [Concomitant]
     Active Substance: CLONAZEPAM
     Route: 048

REACTIONS (3)
  - Rhabdomyolysis [Recovering/Resolving]
  - Renal impairment [Recovered/Resolved]
  - Fall [Recovered/Resolved]

NARRATIVE: CASE EVENT DATE: 20201107
